FAERS Safety Report 24152540 (Version 2)
Quarter: 2024Q3

REPORT INFORMATION
  Report Type: Spontaneous
  Country: US (occurrence: US)
  Receive Date: 20240730
  Receipt Date: 20240927
  Transmission Date: 20241016
  Serious: Yes (Hospitalization)
  Sender: Tilde Sciences
  Company Number: US-TILDE SCIENCES LLC-2024TIL00014

PATIENT
  Sex: Male
  Weight: 136.8 kg

DRUGS (3)
  1. DARAPRIM [Suspect]
     Active Substance: PYRIMETHAMINE
     Indication: Toxoplasmosis
     Dosage: 3 TABLETS DAILY
     Route: 065
     Dates: start: 20240613
  2. MEPRON [Concomitant]
     Active Substance: ATOVAQUONE
  3. LEUCOVORIN [Concomitant]
     Active Substance: LEUCOVORIN\LEUCOVORIN CALCIUM

REACTIONS (3)
  - Failure to thrive [Not Recovered/Not Resolved]
  - Graft versus host disease [Not Recovered/Not Resolved]
  - Off label use [Not Recovered/Not Resolved]

NARRATIVE: CASE EVENT DATE: 20240101
